FAERS Safety Report 19839535 (Version 1)
Quarter: 2021Q3

REPORT INFORMATION
  Report Type: Spontaneous
  Country: US (occurrence: US)
  Receive Date: 20210915
  Receipt Date: 20210915
  Transmission Date: 20211014
  Serious: No
  Sender: FDA-Public Use
  Company Number: None

PATIENT
  Age: 38 Year
  Sex: Female
  Weight: 73.4 kg

DRUGS (1)
  1. BUPRENORPHINE /NALOXONE 8?2MG [Suspect]
     Active Substance: BUPRENORPHINE\NALOXONE
     Indication: DRUG ABUSE
     Route: 060
     Dates: start: 20190409

REACTIONS (1)
  - Nausea [None]
